FAERS Safety Report 17928199 (Version 1)
Quarter: 2020Q2

REPORT INFORMATION
  Report Type: Spontaneous
  Country: US (occurrence: US)
  Receive Date: 20200621
  Receipt Date: 20200621
  Transmission Date: 20200714
  Serious: Yes (Life-Threatening, Hospitalization)
  Sender: FDA-Public Use
  Company Number: None

PATIENT
  Age: 66 Year
  Sex: Male

DRUGS (1)
  1. CHLORTHALIDONE (CHLORTHALIDONE 25MG TAB) [Suspect]
     Active Substance: CHLORTHALIDONE
     Indication: HYPERTENSION
     Route: 048
     Dates: start: 20190808, end: 20200217

REACTIONS (7)
  - Hyperplastic cholecystopathy [None]
  - Pancreatitis acute [None]
  - Biliary dilatation [None]
  - Cholelithiasis [None]
  - Hepatic steatosis [None]
  - Hypokalaemia [None]
  - Oxygen saturation decreased [None]

NARRATIVE: CASE EVENT DATE: 20200215
